FAERS Safety Report 15464578 (Version 2)
Quarter: 2018Q4

REPORT INFORMATION
  Report Type: Spontaneous
  Country: US (occurrence: US)
  Receive Date: 20181004
  Receipt Date: 20181004
  Transmission Date: 20190204
  Serious: No
  Sender: FDA-Public Use
  Company Number: US-MELINTA-US-MLNT-18-00214

PATIENT
  Age: 70 Year
  Sex: Male

DRUGS (2)
  1. ORBACTIV [Suspect]
     Active Substance: ORITAVANCIN
     Indication: PRODUCT USED FOR UNKNOWN INDICATION
     Dosage: NOT PROVIDED
     Route: 041
  2. ORBACTIV [Suspect]
     Active Substance: ORITAVANCIN
     Dosage: NOT PROVIDED
     Route: 041

REACTIONS (4)
  - Off label use [Unknown]
  - Dyspnoea [Unknown]
  - Feeling cold [Unknown]
  - Peripheral circulatory failure [Unknown]
